FAERS Safety Report 9920862 (Version 2)
Quarter: 2014Q1

REPORT INFORMATION
  Report Type: Spontaneous
  Country: US (occurrence: US)
  Receive Date: 20140225
  Receipt Date: 20140307
  Transmission Date: 20141002
  Serious: Yes (Other)
  Sender: FDA-Public Use
  Company Number: US-009507513-1402USA011077

PATIENT
  Sex: Female

DRUGS (3)
  1. PROPECIA [Suspect]
  2. FINASTERIDE [Suspect]
  3. ADDERALL TABLETS [Concomitant]

REACTIONS (2)
  - Abortion spontaneous [Unknown]
  - Exposure via father [Recovered/Resolved]
